FAERS Safety Report 8602367 (Version 4)
Quarter: 2013Q4

REPORT INFORMATION
  Report Type: Report from Study
  Country: JP (occurrence: JP)
  Receive Date: 20120607
  Receipt Date: 20131217
  Transmission Date: 20140711
  Serious: Yes (Other)
  Sender: FDA-Public Use
  Company Number: JP-VERTEX PHARMACEUTICALS INC.-AE-2012-008093

PATIENT
  Age: 63 Year
  Sex: Male

DRUGS (11)
  1. VX-950 (TELAPREVIR) [Suspect]
     Indication: CHRONIC HEPATITIS C
     Dosage: 2250 MG, QD
     Route: 048
     Dates: start: 20120403, end: 20120405
  2. VX-950 (TELAPREVIR) [Suspect]
     Dosage: 1500 MG, QD
     Route: 048
     Dates: start: 20120406, end: 20120514
  3. REBETOL [Suspect]
     Indication: CHRONIC HEPATITIS C
     Dosage: 400 MG, QD
     Route: 048
     Dates: start: 20120403, end: 20120409
  4. REBETOL [Suspect]
     Dosage: 200 MG, QD
     Route: 048
     Dates: start: 20120410, end: 20120502
  5. REBETOL [Suspect]
     Dosage: 400 MG, QD
     Route: 048
     Dates: start: 20120503, end: 20120917
  6. PEGINTERFERON ALFA-2B [Suspect]
     Indication: CHRONIC HEPATITIS C
     Dosage: 0.75 ?G/KG, QW
     Route: 058
     Dates: start: 20120402
  7. ALTAT [Concomitant]
     Dosage: 150 MG, QD
     Route: 048
  8. ALLELOCK [Concomitant]
     Dosage: 5 MG, QD
     Route: 048
     Dates: end: 20120509
  9. CALONAL [Concomitant]
     Dosage: 300 MG, QD
     Route: 048
     Dates: start: 20120403, end: 20120403
  10. CALONAL [Concomitant]
     Dosage: 300 MG, PRN
     Route: 048
     Dates: start: 20120410, end: 20120411
  11. CALONAL [Concomitant]
     Dosage: 300 MG, PRN
     Route: 048
     Dates: start: 20120413, end: 20120423

REACTIONS (2)
  - Pancytopenia [Recovered/Resolved]
  - Haemoglobin decreased [Recovered/Resolved]
